FAERS Safety Report 5017293-2 (Version None)
Quarter: 2006Q2

REPORT INFORMATION
  Report Type: 
  Country: None (occurrence: None)
  Receive Date: 20060414
  Receipt Date: 20060215
  Transmission Date: 20061013
  Serious: No
  Sender: FDA-Public Use
  Company Number: 2006SP000809

PATIENT
  Age: 65 Year
  Sex: Female

DRUGS (2)
  1. LUNESTA [Suspect]
     Dosage: ORAL
     Route: 048
     Dates: start: 20060101
  2. TOPROL-XL [Suspect]
     Dates: start: 20060101

REACTIONS (3)
  - ANOREXIA [None]
  - DEPRESSION [None]
  - DYSGEUSIA [None]
